FAERS Safety Report 6913537-8 (Version None)
Quarter: 2010Q3

REPORT INFORMATION
  Report Type: 
  Country: None (occurrence: None)
  Receive Date: 20100809
  Receipt Date: 20100726
  Transmission Date: 20110219
  Serious: Yes (Other)
  Sender: FDA-Public Use
  Company Number: US-ELI_LILLY_AND_COMPANY-US201007006346

PATIENT
  Sex: Female

DRUGS (4)
  1. ZYPREXA [Suspect]
  2. GEODON [Concomitant]
     Dosage: 40 MG, 2/D
     Route: 048
  3. ABILIFY [Concomitant]
  4. SEROQUEL [Concomitant]

REACTIONS (1)
  - ELECTROCARDIOGRAM QT PROLONGED [None]
